FAERS Safety Report 9931586 (Version 1)
Quarter: 2014Q1

REPORT INFORMATION
  Report Type: Spontaneous
  Country: DE (occurrence: DE)
  Receive Date: 20140228
  Receipt Date: 20140228
  Transmission Date: 20141002
  Serious: Yes (Hospitalization)
  Sender: FDA-Public Use
  Company Number: DE-ROCHE-1356936

PATIENT
  Sex: Female

DRUGS (7)
  1. LUCENTIS [Suspect]
     Indication: AGE-RELATED MACULAR DEGENERATION
     Dosage: THE PATIENT RECEIVED LUCENTIS AT A DOSE OF 0.05 ML PRN INTRAVITREAL ON 31/JAN/2013.
     Route: 050
     Dates: start: 20120614
  2. ASPIRIN PROTECT [Concomitant]
     Route: 065
     Dates: start: 200912
  3. METOHEXAL SUCC COMP [Concomitant]
     Route: 065
     Dates: start: 200912
  4. LOSARTAN [Concomitant]
     Route: 065
     Dates: start: 200912
  5. ALLOBETA [Concomitant]
  6. RESTEX [Concomitant]
     Route: 065
  7. TORASEMIDE [Concomitant]
     Route: 065
     Dates: start: 200912

REACTIONS (2)
  - Pyrexia [Recovered/Resolved]
  - Asthenia [Recovered/Resolved]
